FAERS Safety Report 9230136 (Version 3)
Quarter: 2013Q4

REPORT INFORMATION
  Report Type: Spontaneous
  Country: US (occurrence: US)
  Receive Date: 20130415
  Receipt Date: 20131206
  Transmission Date: 20140711
  Serious: Yes (Hospitalization)
  Sender: FDA-Public Use
  Company Number: US-BAYER-2013-045575

PATIENT
  Age: 34 Year
  Sex: Female
  Weight: 88.44 kg

DRUGS (15)
  1. YAZ [Suspect]
     Indication: CONTRACEPTION
     Dosage: UNK
     Dates: start: 2008, end: 2010
  2. FLECTOR [Concomitant]
     Dosage: 1.3 %, UNK
     Route: 062
     Dates: start: 20100212
  3. MEDROL [Concomitant]
     Dosage: UNK
     Route: 048
     Dates: start: 20100212
  4. OXYCODONE [Concomitant]
     Dosage: 5/325 MG
     Route: 048
     Dates: start: 20100212
  5. EXCEDRIN P.M. [Concomitant]
     Dosage: UNK
     Route: 048
     Dates: start: 20100212
  6. FLEXERIL [Concomitant]
     Dosage: UNK
     Route: 048
     Dates: start: 20100212
  7. NAPROSYN [Concomitant]
     Dosage: UNK
     Route: 048
     Dates: start: 20100311
  8. PERCOCET [Concomitant]
     Indication: PAIN IN EXTREMITY
  9. MOTRIN [Concomitant]
     Dosage: UNK
     Dates: start: 2009
  10. ADVIL [Concomitant]
     Dosage: UNK
     Dates: start: 2009
  11. ALEVE [Concomitant]
     Dosage: UNK
     Dates: start: 2009
  12. MINOCYCLINE [Concomitant]
     Dosage: UNK
     Dates: start: 2010
  13. OXYCODONE/APAP [Concomitant]
     Dosage: 5-325MG
     Route: 048
  14. HYDROCODONE BITARTRATE W/IBUPROFEN [Concomitant]
     Dosage: UNK
     Route: 048
  15. CEPHALEXIN [Concomitant]
     Dosage: 500 MG, UNK
     Route: 048

REACTIONS (12)
  - Thrombosis [None]
  - Thrombophlebitis superficial [None]
  - Thrombosis [None]
  - Injury [None]
  - Pain [None]
  - General physical health deterioration [None]
  - Abdominal pain [None]
  - Emotional distress [None]
  - Anxiety [None]
  - Pain [None]
  - Lymphoedema [None]
  - Iron deficiency anaemia [None]
